FAERS Safety Report 7322575-5 (Version None)
Quarter: 2011Q1

REPORT INFORMATION
  Report Type: 
  Country: None (occurrence: None)
  Receive Date: 20110215
  Receipt Date: 20110210
  Transmission Date: 20110831
  Serious: Yes (Hospitalization)
  Sender: FDA-Public Use
  Company Number: 2011SP006076

PATIENT
  Age: 77 Year
  Sex: Male
  Weight: 48 kg

DRUGS (1)
  1. CLARITIN [Suspect]
     Indication: PRODUCT USED FOR UNKNOWN INDICATION
     Dosage: PO
     Route: 048
     Dates: start: 20101201, end: 20101201

REACTIONS (6)
  - OROPHARYNGEAL PAIN [None]
  - RETCHING [None]
  - VOMITING [None]
  - HEAD INJURY [None]
  - SYNCOPE [None]
  - THROAT IRRITATION [None]
